FAERS Safety Report 18695275 (Version 1)
Quarter: 2021Q1

REPORT INFORMATION
  Report Type: Spontaneous
  Country: US (occurrence: US)
  Receive Date: 20210102
  Receipt Date: 20210102
  Transmission Date: 20210419
  Serious: No
  Sender: FDA-Public Use
  Company Number: None

PATIENT
  Age: 62 Year
  Sex: Female
  Weight: 108 kg

DRUGS (18)
  1. ATORVASTATIN [Concomitant]
     Active Substance: ATORVASTATIN
  2. BUPROPION. [Concomitant]
     Active Substance: BUPROPION
  3. GABAPENTIN. [Concomitant]
     Active Substance: GABAPENTIN
  4. IBUPROFEN. [Concomitant]
     Active Substance: IBUPROFEN
  5. JARDIANCE [Concomitant]
     Active Substance: EMPAGLIFLOZIN
  6. ESTRADIOL. [Concomitant]
     Active Substance: ESTRADIOL
  7. SYMBICORT [Concomitant]
     Active Substance: BUDESONIDE\FORMOTEROL FUMARATE DIHYDRATE
  8. FLUCONOZOLE [Concomitant]
  9. FISH OIL [Concomitant]
     Active Substance: FISH OIL
  10. GLUCOSAMINE/CHONDROITIN [Concomitant]
  11. METHYLPHENIDATE ER 54 MG TAB [Suspect]
     Active Substance: METHYLPHENIDATE HYDROCHLORIDE
     Indication: ATTENTION DEFICIT HYPERACTIVITY DISORDER
     Dosage: ?          QUANTITY:1 TABLET(S);?
     Route: 048
     Dates: start: 20200615, end: 20201006
  12. AREDS2 [Concomitant]
  13. XIIDRIA [Concomitant]
  14. IRON [Concomitant]
     Active Substance: IRON
  15. FOLIC ACID. [Concomitant]
     Active Substance: FOLIC ACID
  16. DULOXETINE. [Concomitant]
     Active Substance: DULOXETINE
  17. FLUTICASONE. [Concomitant]
     Active Substance: FLUTICASONE
  18. BABY ASPIRIN [Concomitant]
     Active Substance: ASPIRIN

REACTIONS (5)
  - Manufacturing issue [None]
  - Hyperhidrosis [None]
  - Feeling jittery [None]
  - Gastrointestinal disorder [None]
  - Discomfort [None]

NARRATIVE: CASE EVENT DATE: 20201006
